FAERS Safety Report 25231220 (Version 1)
Quarter: 2025Q2

REPORT INFORMATION
  Report Type: Spontaneous
  Country: US (occurrence: None)
  Receive Date: 20250423
  Receipt Date: 20250423
  Transmission Date: 20250716
  Serious: Yes (Other)
  Sender: INCYTE
  Company Number: US-INCYTE CORPORATION-2025IN004240

PATIENT
  Age: 70 Year

DRUGS (1)
  1. JAKAFI [Suspect]
     Active Substance: RUXOLITINIB
     Indication: Prostate cancer
     Dosage: 15 MILLIGRAM, BID

REACTIONS (4)
  - Prostate cancer [Unknown]
  - Disease progression [Unknown]
  - Haemoglobin decreased [Unknown]
  - Off label use [Unknown]
